APPROVED DRUG PRODUCT: LANTHANUM CARBONATE
Active Ingredient: LANTHANUM CARBONATE
Strength: EQ 1GM BASE
Dosage Form/Route: TABLET, CHEWABLE;ORAL
Application: A202329 | Product #003 | TE Code: AB
Applicant: ALKEM LABORATORIES LTD
Approved: Mar 13, 2025 | RLD: No | RS: No | Type: RX